FAERS Safety Report 7893647-1 (Version None)
Quarter: 2011Q4

REPORT INFORMATION
  Report Type: 
  Country: None (occurrence: None)
  Receive Date: 20111104
  Receipt Date: 20111031
  Transmission Date: 20120403
  Serious: Yes (Other)
  Sender: FDA-Public Use
  Company Number: JP-VIIV HEALTHCARE LIMITED-B0759720A

PATIENT
  Sex: Male

DRUGS (17)
  1. EPIVIR [Suspect]
     Dosage: 300MG PER DAY
     Route: 048
     Dates: start: 20040420, end: 20080604
  2. EPIVIR [Suspect]
     Dosage: 300MG PER DAY
     Route: 048
     Dates: start: 20080613
  3. MAGNESIUM SULFATE [Concomitant]
     Indication: POSTOPERATIVE CARE
     Dosage: 990MG PER DAY
     Route: 048
     Dates: start: 20100730, end: 20100806
  4. NORVIR [Suspect]
     Dosage: 100MG PER DAY
     Route: 048
     Dates: start: 20040615, end: 20080604
  5. ZIAGEN [Suspect]
     Dosage: 600MG PER DAY
     Route: 048
     Dates: start: 20080613
  6. REYATAZ [Suspect]
     Indication: HIV INFECTION
     Dosage: 400MG PER DAY
     Route: 048
     Dates: start: 20040420, end: 20040614
  7. REYATAZ [Suspect]
     Dosage: 300MG PER DAY
     Route: 048
     Dates: start: 20040615, end: 20080604
  8. EPIVIR [Suspect]
     Indication: HIV INFECTION
     Dosage: 300MG PER DAY
     Route: 048
     Dates: start: 19970417, end: 19970514
  9. EPIVIR [Suspect]
     Dosage: 300MG PER DAY
     Route: 048
     Dates: start: 19971002, end: 19991031
  10. NORVIR [Suspect]
     Indication: HIV INFECTION
     Dosage: 400MG PER DAY
     Route: 048
     Dates: start: 19991120, end: 20031202
  11. LEXIVA [Suspect]
     Indication: HIV INFECTION
     Dosage: 1400MG PER DAY
     Route: 048
     Dates: start: 20080613
  12. EPIVIR [Suspect]
     Dosage: 300MG PER DAY
     Route: 048
     Dates: start: 20030401, end: 20031203
  13. NORVIR [Suspect]
     Dosage: 100MG PER DAY
     Route: 048
     Dates: start: 20080613
  14. EPIVIR [Suspect]
     Dosage: 300MG PER DAY
     Route: 048
     Dates: start: 19991101, end: 20030331
  15. ZIAGEN [Suspect]
     Indication: HIV INFECTION
     Dosage: 600MG PER DAY
     Route: 048
     Dates: start: 20040420, end: 20080604
  16. RISPERDAL [Concomitant]
     Indication: SCHIZOPHRENIA
     Dosage: 1MG PER DAY
     Route: 048
     Dates: start: 20090401
  17. LOXOPROFEN [Concomitant]
     Indication: PROCEDURAL PAIN
     Dosage: 60MG PER DAY
     Route: 048
     Dates: start: 20100730, end: 20101006

REACTIONS (3)
  - ANAL FISTULA [None]
  - RENAL FAILURE ACUTE [None]
  - CALCULUS URINARY [None]
